FAERS Safety Report 23130538 (Version 1)
Quarter: 2023Q4

REPORT INFORMATION
  Report Type: Spontaneous
  Country: US (occurrence: US)
  Receive Date: 20231031
  Receipt Date: 20231031
  Transmission Date: 20240110
  Serious: Yes (Other)
  Sender: FDA-Public Use
  Company Number: US-SUN PHARMACEUTICAL INDUSTRIES LTD-2023R1-415829

PATIENT
  Age: 23 Year
  Sex: Female

DRUGS (1)
  1. CAFFEINE [Suspect]
     Active Substance: CAFFEINE
     Indication: Headache
     Route: 065

REACTIONS (1)
  - Therapy non-responder [Unknown]
